FAERS Safety Report 17798776 (Version 1)
Quarter: 2020Q2

REPORT INFORMATION
  Report Type: Other
  Country: CA (occurrence: CA)
  Receive Date: 20200518
  Receipt Date: 20200518
  Transmission Date: 20200714
  Serious: Yes (Hospitalization, Other)
  Sender: FDA-Public Use
  Company Number: CA-BECTON DICKINSON-2020BDN00133

PATIENT
  Age: 44 Year
  Sex: Female

DRUGS (6)
  1. CHLORAPREP [Suspect]
     Active Substance: CHLORHEXIDINE GLUCONATE\ISOPROPYL ALCOHOL
     Indication: ACANTHAMOEBA KERATITIS
     Dosage: 1 DOSAGE UNITS, EVERY 2 HOURS
     Route: 061
  2. VORICONAZOLE. [Suspect]
     Active Substance: VORICONAZOLE
     Dosage: 1 DOSAGE FORM, EVERY 1 HOUR
     Route: 061
  3. GATIFLOXACIN. [Concomitant]
     Active Substance: GATIFLOXACIN
  4. VORICONAZOLE. [Suspect]
     Active Substance: VORICONAZOLE
     Indication: ACANTHAMOEBA KERATITIS
     Dosage: 200 MG, 2 EVERY 1 DAYS
     Route: 048
  5. PREDNISOLONE. [Concomitant]
     Active Substance: PREDNISOLONE
  6. PREDNISOLONE ACETATE. [Concomitant]
     Active Substance: PREDNISOLONE ACETATE

REACTIONS (10)
  - Blood creatinine increased [Unknown]
  - Corneal disorder [Unknown]
  - Decreased appetite [Unknown]
  - Ocular toxicity [Unknown]
  - Drug ineffective [Unknown]
  - Drug intolerance [Unknown]
  - Product use in unapproved indication [Unknown]
  - Therapy non-responder [Unknown]
  - Electrolyte imbalance [Unknown]
  - Ill-defined disorder [Unknown]
